FAERS Safety Report 6138339-4 (Version None)
Quarter: 2009Q1

REPORT INFORMATION
  Report Type: 
  Country: None (occurrence: None)
  Receive Date: 20090327
  Receipt Date: 20090327
  Transmission Date: 20090719
  Serious: Yes (Other)
  Sender: FDA-Public Use
  Company Number: None

PATIENT
  Age: 59 Year
  Sex: Male
  Weight: 182.7996 kg

DRUGS (3)
  1. PROVENTIL [Suspect]
     Indication: ALPHA-1 ANTI-TRYPSIN DEFICIENCY
     Dosage: 2 PUFFS TIMES PER DAY INHAL
     Route: 055
     Dates: start: 20081211, end: 20081223
  2. ALBUTEROL [Concomitant]
  3. PROVENTIL WITHOUT HFA PROPELLANT [Concomitant]

REACTIONS (4)
  - ERYTHEMA [None]
  - FACE OEDEMA [None]
  - PRODUCT QUALITY ISSUE [None]
  - URTICARIA [None]
